FAERS Safety Report 8214823-4 (Version None)
Quarter: 2012Q1

REPORT INFORMATION
  Report Type: 
  Country: None (occurrence: None)
  Receive Date: 20120316
  Receipt Date: 20120309
  Transmission Date: 20120608
  Serious: Yes (Hospitalization)
  Sender: FDA-Public Use
  Company Number: IT-ABBOTT-12P-083-0914348-00

PATIENT
  Sex: Female

DRUGS (6)
  1. DEPAKENE [Suspect]
     Dosage: GASTRO-RESISTANT TABLET, ONCE
     Route: 048
     Dates: start: 20120130, end: 20120130
  2. CLONAZEPAM [Suspect]
     Dosage: ONCE
     Route: 048
     Dates: start: 20120130, end: 20120130
  3. HALDOL [Concomitant]
     Indication: PRODUCT USED FOR UNKNOWN INDICATION
  4. FLUPHENAZINE DECANOATE [Concomitant]
     Indication: PRODUCT USED FOR UNKNOWN INDICATION
  5. CLONAZEPAM [Suspect]
     Indication: PRODUCT USED FOR UNKNOWN INDICATION
     Route: 048
  6. DEPAKENE [Suspect]
     Indication: MOOD SWINGS
     Dosage: GASTRO-RESISTANT TABLET
     Route: 048

REACTIONS (3)
  - MULTIPLE DRUG OVERDOSE [None]
  - BRADYPHRENIA [None]
  - BRADYKINESIA [None]
